FAERS Safety Report 7045732-4 (Version None)
Quarter: 2010Q4

REPORT INFORMATION
  Report Type: 
  Country: None (occurrence: None)
  Receive Date: 20101013
  Receipt Date: 20101013
  Transmission Date: 20110411
  Serious: No
  Sender: FDA-Public Use
  Company Number: None

PATIENT
  Sex: Male

DRUGS (3)
  1. DEPAKOTE [Suspect]
     Dosage: 1500 MG QHS PO
     Route: 048
     Dates: start: 20100916
  2. ARIPIPAZOLE [Concomitant]
  3. FLUPHENAZINE [Concomitant]

REACTIONS (5)
  - AFFECTIVE DISORDER [None]
  - DISTURBANCE IN ATTENTION [None]
  - DYSARTHRIA [None]
  - HYPERAMMONAEMIA [None]
  - STUPOR [None]
